FAERS Safety Report 6576131-7 (Version None)
Quarter: 2010Q1

REPORT INFORMATION
  Report Type: 
  Country: None (occurrence: None)
  Receive Date: 20100209
  Receipt Date: 20100205
  Transmission Date: 20100710
  Serious: Yes (Other)
  Sender: FDA-Public Use
  Company Number: PHEH2009US01295

PATIENT
  Sex: Male

DRUGS (2)
  1. ELIDEL [Suspect]
     Indication: ECZEMA
     Dosage: BID
     Route: 061
     Dates: start: 20050317
  2. PROTOPIC [Suspect]
     Indication: ECZEMA

REACTIONS (2)
  - HODGKIN'S DISEASE [None]
  - INJURY [None]
